FAERS Safety Report 20166731 (Version 3)
Quarter: 2022Q1

REPORT INFORMATION
  Report Type: Report from Study
  Country: CN (occurrence: CN)
  Receive Date: 20211209
  Receipt Date: 20220107
  Transmission Date: 20220423
  Serious: Yes (Death, Life-Threatening, Hospitalization)
  Sender: FDA-Public Use
  Company Number: CN-PFIZER INC-202101723261

PATIENT
  Age: 72 Year
  Sex: Male
  Weight: 59 kg

DRUGS (11)
  1. PACLITAXEL [Suspect]
     Active Substance: PACLITAXEL
     Indication: Non-small cell lung cancer
     Dosage: 299 MG, ONCE EVERY 3 WEEKS
     Route: 041
     Dates: start: 20210319, end: 20210319
  2. PACLITAXEL [Suspect]
     Active Substance: PACLITAXEL
     Dosage: 299 MG, ONCE EVERY 3 WEEKS
     Route: 041
     Dates: start: 20210409, end: 20210409
  3. PACLITAXEL [Suspect]
     Active Substance: PACLITAXEL
     Dosage: 308 MG, ONCE EVERY 3 WEEKS
     Route: 041
     Dates: start: 20210508, end: 20210602
  4. INVESTIGATIONAL PRODUCT [Suspect]
     Active Substance: INVESTIGATIONAL PRODUCT
     Indication: Non-small cell lung cancer
     Dosage: MAINTAIN BLINDING, (STUDY DRUG COMBINED WITH CHEMOTHERAPY)
     Dates: start: 20210318, end: 20210408
  5. INVESTIGATIONAL PRODUCT [Suspect]
     Active Substance: INVESTIGATIONAL PRODUCT
     Dosage: MAINTAIN BLINDING, (STUDY DRUG COMBINED WITH CHEMOTHERAPY)
     Dates: start: 20210507, end: 20210601
  6. INVESTIGATIONAL PRODUCT [Suspect]
     Active Substance: INVESTIGATIONAL PRODUCT
     Dosage: MAINTAIN BLINDING, (STUDY DRUG COMBINED WITH CHEMOTHERAPY)
     Dates: start: 20210622, end: 20210706
  7. INVESTIGATIONAL PRODUCT [Suspect]
     Active Substance: INVESTIGATIONAL PRODUCT
     Dosage: MAINTAIN BLINDING, (STUDY DRUG COMBINED WITH CHEMOTHERAPY)
     Dates: start: 20210722, end: 20210929
  8. CARBOPLATIN [Suspect]
     Active Substance: CARBOPLATIN
     Indication: Non-small cell lung cancer
     Dosage: 450 MG, EVERY 3 WEEKS
     Route: 041
     Dates: start: 20210319, end: 20210319
  9. CARBOPLATIN [Suspect]
     Active Substance: CARBOPLATIN
     Dosage: 500 MG, ONCE EVERY 3 WEEKS
     Route: 041
     Dates: start: 20210409, end: 20210508
  10. CARBOPLATIN [Suspect]
     Active Substance: CARBOPLATIN
     Dosage: 500 MG, ONCE EVERY 3 WEEKS
     Route: 041
     Dates: start: 20210508, end: 20210508
  11. CARBOPLATIN [Suspect]
     Active Substance: CARBOPLATIN
     Dosage: 450 MG, ONCE EVERY 3 WEEKS
     Route: 041
     Dates: start: 20210602, end: 20210602

REACTIONS (1)
  - Pneumocystis jirovecii pneumonia [Fatal]

NARRATIVE: CASE EVENT DATE: 20211119
